FAERS Safety Report 6224890-5 (Version None)
Quarter: 2009Q2

REPORT INFORMATION
  Report Type: 
  Country: None (occurrence: None)
  Receive Date: 20090612
  Receipt Date: 20090327
  Transmission Date: 20091009
  Serious: No
  Sender: FDA-Public Use
  Company Number: US-ABBOTT-09P-163-0565175-00

PATIENT
  Sex: Female
  Weight: 71.732 kg

DRUGS (5)
  1. HUMIRA [Suspect]
     Indication: CROHN'S DISEASE
     Route: 058
     Dates: start: 20090327, end: 20090327
  2. HUMIRA [Suspect]
  3. UNKNOWN BIRTH CONTROL [Concomitant]
     Indication: CONTRACEPTION
  4. IMURAN [Concomitant]
     Indication: CROHN'S DISEASE
  5. MULTI-VITAMIN [Concomitant]
     Indication: DRUG USE FOR UNKNOWN INDICATION

REACTIONS (2)
  - INJECTION SITE EXTRAVASATION [None]
  - WRONG TECHNIQUE IN DRUG USAGE PROCESS [None]
